FAERS Safety Report 5465388-1 (Version None)
Quarter: 2007Q3

REPORT INFORMATION
  Report Type: 
  Country: None (occurrence: None)
  Receive Date: 20070924
  Receipt Date: 20070914
  Transmission Date: 20080115
  Serious: Yes (Hospitalization)
  Sender: FDA-Public Use
  Company Number: DE-AMGEN-UK234044

PATIENT
  Age: 67 Year
  Sex: Female
  Weight: 64 kg

DRUGS (7)
  1. ARANESP [Suspect]
     Indication: RENAL FAILURE CHRONIC
     Route: 065
     Dates: start: 20051108
  2. VITAMIN D [Concomitant]
  3. VITAMIN B [Concomitant]
  4. ASCORBIC ACID [Concomitant]
  5. ANTIHYPERTENSIVES [Concomitant]
  6. FERRLECIT [Concomitant]
  7. CALCIUM [Concomitant]
     Route: 065

REACTIONS (1)
  - SHUNT OCCLUSION [None]
